FAERS Safety Report 5424565-6 (Version None)
Quarter: 2007Q3

REPORT INFORMATION
  Report Type: 
  Country: None (occurrence: None)
  Receive Date: 20070726
  Receipt Date: 20070619
  Transmission Date: 20080115
  Serious: No
  Sender: FDA-Public Use
  Company Number: POMP-11106

PATIENT
  Age: 56 Year
  Sex: Female
  Weight: 83 kg

DRUGS (6)
  1. MYOZYME [Suspect]
     Indication: GLYCOGEN STORAGE DISEASE TYPE II
     Dosage: 20 MG/KG Q2WKS IV
     Route: 042
     Dates: start: 20070323
  2. FLECAINIDE ACETATE [Concomitant]
  3. AMITRIPTYLINE HCL [Concomitant]
  4. PARACETAMOL [Concomitant]
  5. FEMOSTON [Concomitant]
  6. FERROUS GLOCUNATE [Concomitant]

REACTIONS (5)
  - CHEST DISCOMFORT [None]
  - CHILLS [None]
  - FEELING HOT [None]
  - FLUSHING [None]
  - PERIPHERAL CIRCULATORY FAILURE [None]
